FAERS Safety Report 11083576 (Version 1)
Quarter: 2015Q2

REPORT INFORMATION
  Report Type: Report from Study
  Country: US (occurrence: US)
  Receive Date: 20150501
  Receipt Date: 20150501
  Transmission Date: 20150821
  Serious: Yes (Hospitalization)
  Sender: FDA-Public Use
  Company Number: US-BIOGENIDEC-2015BI055227

PATIENT
  Age: 61 Year
  Sex: Female

DRUGS (1)
  1. AVONEX [Suspect]
     Active Substance: INTERFERON BETA-1A
     Indication: MULTIPLE SCLEROSIS
     Route: 030
     Dates: start: 20040601

REACTIONS (4)
  - Thrombosis [Recovered/Resolved]
  - Limb injury [Recovered/Resolved]
  - Localised infection [Recovered/Resolved]
  - Pain in extremity [Not Recovered/Not Resolved]

NARRATIVE: CASE EVENT DATE: 20150217
